FAERS Safety Report 14548506 (Version 1)
Quarter: 2018Q1

REPORT INFORMATION
  Report Type: Spontaneous
  Country: US (occurrence: US)
  Receive Date: 20180219
  Receipt Date: 20180219
  Transmission Date: 20180509
  Serious: No
  Sender: FDA-Public Use
  Company Number: US-ROCHE-1939142

PATIENT
  Sex: Male

DRUGS (10)
  1. VENTOLIN [Concomitant]
     Active Substance: ALBUTEROL SULFATE
  2. PREDNISONE. [Concomitant]
     Active Substance: PREDNISONE
  3. XOLAIR [Suspect]
     Active Substance: OMALIZUMAB
     Indication: ASTHMA
     Route: 058
     Dates: start: 20140501
  4. XOLAIR [Suspect]
     Active Substance: OMALIZUMAB
     Indication: HYPERSENSITIVITY
  5. SINGULAIR [Concomitant]
     Active Substance: MONTELUKAST SODIUM
  6. XYZAL [Concomitant]
     Active Substance: LEVOCETIRIZINE DIHYDROCHLORIDE
  7. OPTIVAR [Concomitant]
     Active Substance: AZELASTINE HYDROCHLORIDE
  8. QVAR [Concomitant]
     Active Substance: BECLOMETHASONE DIPROPIONATE
  9. FLONASE [Concomitant]
     Active Substance: FLUTICASONE PROPIONATE
  10. ALBUTEROL. [Concomitant]
     Active Substance: ALBUTEROL

REACTIONS (1)
  - Asthma [Unknown]
